FAERS Safety Report 8559588-1 (Version None)
Quarter: 2012Q3

REPORT INFORMATION
  Report Type: 
  Country: None (occurrence: None)
  Receive Date: 20120802
  Receipt Date: 20120726
  Transmission Date: 20120928
  Serious: No
  Sender: FDA-Public Use
  Company Number: GB-ASTRAZENECA-2010SE34107

PATIENT
  Age: 71 Year
  Sex: Female

DRUGS (18)
  1. ASPIRIN [Concomitant]
     Dates: start: 20110413
  2. KLONOPIN [Concomitant]
     Indication: AGITATION
     Dates: start: 20050907
  3. CIPROFLOXACIN [Concomitant]
     Dosage: 500
     Dates: start: 20110413
  4. KLONOPIN [Concomitant]
     Indication: ANXIETY
     Dates: start: 20050907
  5. ZOLOFT [Concomitant]
     Dates: end: 20050907
  6. BISCODYL [Concomitant]
     Dosage: 5
     Dates: start: 20110413
  7. PREDNISONE [Concomitant]
     Route: 048
     Dates: start: 19950125
  8. TRAZODONE HYDROCHLORIDE [Concomitant]
     Indication: INSOMNIA
     Route: 048
     Dates: start: 20050907
  9. KLONOPIN [Concomitant]
     Dosage: 1
     Dates: start: 20110413
  10. CLOPIDOG [Concomitant]
     Dates: start: 20110413
  11. RISPERDAL [Concomitant]
     Indication: PSYCHOTIC DISORDER
     Dates: start: 20050907
  12. SEROQUEL [Suspect]
     Route: 048
     Dates: start: 20091027
  13. AMLODIPINE [Concomitant]
     Dosage: 10
     Dates: start: 20110413
  14. CELEXA [Concomitant]
     Indication: DEPRESSION
     Route: 048
     Dates: start: 20050907
  15. KLONOPIN [Concomitant]
     Dosage: 1
     Dates: start: 20110413
  16. GLYBUR [Concomitant]
     Dates: start: 20110413
  17. HYDROXYZIN [Concomitant]
     Dosage: 25
     Dates: start: 20110413
  18. NAPROSYN [Concomitant]
     Dosage: 250 TO 500 MG PO BID PRN
     Route: 048
     Dates: start: 19950125

REACTIONS (2)
  - DYSKINESIA [None]
  - SPEECH DISORDER [None]
